FAERS Safety Report 9437707 (Version 2)
Quarter: 2013Q3

REPORT INFORMATION
  Report Type: Spontaneous
  Country: JP (occurrence: JP)
  Receive Date: 20130802
  Receipt Date: 20130809
  Transmission Date: 20140515
  Serious: Yes (Hospitalization)
  Sender: FDA-Public Use
  Company Number: JP-ABBOTT-13P-087-1125851-00

PATIENT
  Age: 67 Year
  Sex: Male

DRUGS (5)
  1. HUMIRA [Suspect]
     Indication: PSORIASIS
     Route: 058
     Dates: start: 20130515, end: 20130515
  2. HUMIRA [Suspect]
     Dates: start: 20130529, end: 20130626
  3. ISCOTIN [Suspect]
     Indication: ANTIBIOTIC PROPHYLAXIS
     Route: 048
     Dates: start: 20130515, end: 20130626
  4. PYRIDOXAL PHOSPHATE [Concomitant]
     Indication: ADVERSE DRUG REACTION
     Route: 048
     Dates: start: 20130515, end: 20130626
  5. PYRIDOXAL PHOSPHATE [Concomitant]
     Indication: PROPHYLAXIS

REACTIONS (3)
  - Hepatic function abnormal [Recovering/Resolving]
  - Discomfort [Unknown]
  - Malaise [Unknown]
